FAERS Safety Report 5008847-8 (Version None)
Quarter: 2006Q2

REPORT INFORMATION
  Report Type: 
  Country: None (occurrence: None)
  Receive Date: 20060523
  Receipt Date: 20060327
  Transmission Date: 20061013
  Serious: Yes (Death, Hospitalization)
  Sender: FDA-Public Use
  Company Number: US-BRISTOL-MYERS SQUIBB COMPANY-13327820

PATIENT
  Age: 56 Year
  Sex: Female
  Weight: 79 kg

DRUGS (10)
  1. CARBOPLATIN [Suspect]
     Indication: BREAST CANCER METASTATIC
     Dosage: THERAPY START DATE 10-MAR-06. GIVEN ON DAY 1 AND 8 OF A 21 DAY CYCLE.
     Route: 042
     Dates: start: 20060317, end: 20060317
  2. IRINOTECAN HCL [Suspect]
     Indication: BREAST CANCER METASTATIC
     Dosage: THERAPY START DATE 10-MAR-06. GIVEN ON DAYS 1 AND 8 OF 21 DAY CYCLE.
     Route: 042
     Dates: start: 20060317, end: 20060317
  3. VICODIN [Concomitant]
     Indication: PAIN
  4. DIOVAN HCT [Concomitant]
     Indication: HYPERTENSION
     Dosage: 160/25 MG TABLET, 1 TABLET PER DAY.
  5. ADVAIR DISKUS 100/50 [Concomitant]
     Indication: ASTHMA
     Dosage: DOSAGE FORM = 1 PUFF
     Route: 055
  6. TOPROL-XL [Concomitant]
     Indication: HYPERTENSION
  7. MOTRIN [Concomitant]
     Indication: PAIN
  8. CALCIUM + VITAMIN D [Concomitant]
     Indication: MINERAL SUPPLEMENTATION
  9. PHENERGAN HCL [Concomitant]
     Indication: NAUSEA
     Dates: start: 20060308
  10. NEUPOGEN [Concomitant]
     Indication: NEUTROPENIA
     Route: 058
     Dates: start: 20060324

REACTIONS (4)
  - ATRIAL FIBRILLATION [None]
  - BREAST CANCER METASTATIC [None]
  - DEHYDRATION [None]
  - RENAL FAILURE ACUTE [None]
